FAERS Safety Report 16347294 (Version 1)
Quarter: 2019Q2

REPORT INFORMATION
  Report Type: Spontaneous
  Country: US (occurrence: US)
  Receive Date: 20190417
  Receipt Date: 20190417
  Transmission Date: 20190711
  Serious: Yes (Other)
  Sender: FDA-Public Use
  Company Number: None

PATIENT
  Age: 41 Year
  Sex: Male
  Weight: 81.01 kg

DRUGS (1)
  1. BUPRENORPHINE/NALOXONE 8MG-2MG [Suspect]
     Active Substance: BUPRENORPHINE\NALOXONE
     Indication: DRUG USE DISORDER
     Dosage: ?          OTHER DOSE:8MG-2MG;OTHER FREQUENCY:1 TABLET BID;?
     Route: 060
     Dates: start: 20190318

REACTIONS (2)
  - Product dosage form issue [None]
  - Nausea [None]

NARRATIVE: CASE EVENT DATE: 20190415
